FAERS Safety Report 13274216 (Version 1)
Quarter: 2017Q1

REPORT INFORMATION
  Report Type: Spontaneous
  Country: US (occurrence: US)
  Receive Date: 20170227
  Receipt Date: 20170227
  Transmission Date: 20170428
  Serious: Yes (Disabling)
  Sender: FDA-Public Use
  Company Number: US-SA-2017SA029749

PATIENT
  Age: 58 Year
  Sex: Male

DRUGS (1)
  1. LANTUS [Suspect]
     Active Substance: INSULIN GLARGINE
     Indication: DIABETES MELLITUS
     Dosage: 2008OR 2009 (START DATE) DOSE:26 UNIT(S)
     Route: 065

REACTIONS (2)
  - Product use issue [Unknown]
  - Colon cancer [Unknown]
